FAERS Safety Report 8292803-0 (Version None)
Quarter: 2012Q2

REPORT INFORMATION
  Report Type: 
  Country: None (occurrence: None)
  Receive Date: 20120417
  Receipt Date: 20111206
  Transmission Date: 20120825
  Serious: No
  Sender: FDA-Public Use
  Company Number: US-ASTRAZENECA-2011SE73955

PATIENT
  Age: 69 Year
  Sex: Female

DRUGS (8)
  1. ALBUTEROL [Concomitant]
  2. LEVICILLIN [Concomitant]
  3. ASPIRIN [Concomitant]
  4. NEXIUM [Suspect]
     Indication: GASTROOESOPHAGEAL REFLUX DISEASE
     Route: 048
  5. CRESTOR [Suspect]
     Route: 048
  6. LIBURIDE [Concomitant]
  7. ANTIBIOTIC [Concomitant]
  8. PLAVIX [Concomitant]

REACTIONS (5)
  - BACK PAIN [None]
  - DYSPHAGIA [None]
  - MYALGIA [None]
  - INCORRECT DRUG ADMINISTRATION DURATION [None]
  - DRUG INEFFECTIVE [None]
